FAERS Safety Report 8016272-0 (Version None)
Quarter: 2011Q4

REPORT INFORMATION
  Report Type: 
  Country: None (occurrence: None)
  Receive Date: 20111230
  Receipt Date: 20111222
  Transmission Date: 20120403
  Serious: Yes (Life-Threatening)
  Sender: FDA-Public Use
  Company Number: DE-MERCK-1112DEU00019

PATIENT
  Age: 3 Year
  Sex: Female
  Weight: 15 kg

DRUGS (1)
  1. SINGULAIR [Suspect]
     Indication: BRONCHITIS CHRONIC
     Route: 048
     Dates: start: 20111001

REACTIONS (7)
  - OEDEMA [None]
  - DYSPNOEA [None]
  - NAUSEA [None]
  - OVERDOSE [None]
  - COUGH [None]
  - URTICARIA [None]
  - VOMITING [None]
